FAERS Safety Report 21780306 (Version 1)
Quarter: 2022Q4

REPORT INFORMATION
  Report Type: Spontaneous
  Country: IT (occurrence: IT)
  Receive Date: 20221227
  Receipt Date: 20221227
  Transmission Date: 20230112
  Serious: Yes (Hospitalization)
  Sender: FDA-Public Use
  Company Number: None

PATIENT
  Age: 88 Year
  Sex: Female

DRUGS (8)
  1. ELIQUIS [Suspect]
     Active Substance: APIXABAN
     Indication: Deep vein thrombosis
     Dosage: ELIQUIS 2.5MG
     Route: 048
     Dates: start: 20221125, end: 20221205
  2. BISOPROLOL FUMARATE [Concomitant]
     Active Substance: BISOPROLOL FUMARATE
     Indication: Product used for unknown indication
     Route: 048
  3. CANRENONE [Concomitant]
     Active Substance: CANRENONE
     Indication: Product used for unknown indication
     Dosage: LUVION 10MG
     Route: 048
  4. ZOLOFT [Concomitant]
     Active Substance: SERTRALINE HYDROCHLORIDE
     Indication: Product used for unknown indication
     Dosage: ZOLOFT 50MG
     Route: 048
  5. OSSIGENO [Concomitant]
     Indication: Chronic obstructive pulmonary disease
  6. BECLOMETHASONE DIPROPIONATE\FORMOTEROL FUMARATE\GLYCOPYRROLATE [Concomitant]
     Active Substance: BECLOMETHASONE DIPROPIONATE\FORMOTEROL FUMARATE\GLYCOPYRROLATE
     Indication: Chronic obstructive pulmonary disease
  7. OMEPRAZOLE [Concomitant]
     Active Substance: OMEPRAZOLE
     Indication: Product used for unknown indication
     Dosage: OMEPRAZOLO 20MG
     Route: 048
  8. LASIX [Concomitant]
     Active Substance: FUROSEMIDE
     Indication: Product used for unknown indication
     Dosage: LASIX 25MG
     Route: 048

REACTIONS (1)
  - Anaemia [Recovering/Resolving]

NARRATIVE: CASE EVENT DATE: 20221205
